FAERS Safety Report 4930660-8 (Version None)
Quarter: 2006Q1

REPORT INFORMATION
  Report Type: 
  Country: None (occurrence: None)
  Receive Date: 20060227
  Receipt Date: 20060213
  Transmission Date: 20060701
  Serious: Yes (Hospitalization)
  Sender: FDA-Public Use
  Company Number: HQWYE581831JAN06

PATIENT
  Age: 63 Year
  Sex: Male

DRUGS (18)
  1. RAPAMUNE [Suspect]
     Indication: PROPHYLAXIS AGAINST TRANSPLANT REJECTION
     Dosage: 4 MG 1X PER 1 DAY, ORAL
     Route: 048
     Dates: start: 20041018, end: 20060117
  2. MEDROL [Suspect]
     Indication: PROPHYLAXIS AGAINST TRANSPLANT REJECTION
     Dosage: SEE IMAGE
     Route: 048
     Dates: start: 20040808, end: 20060115
  3. MEDROL [Suspect]
     Indication: PROPHYLAXIS AGAINST TRANSPLANT REJECTION
     Dosage: SEE IMAGE
     Route: 048
     Dates: start: 20060119
  4. MYCOPHENOLATE MOFETIL (MYCOPHENOLATE MOFETIL, ) [Suspect]
     Indication: PROPHYLAXIS AGAINST TRANSPLANT REJECTION
     Dosage: SEE IMAGE
     Route: 048
     Dates: start: 20040804, end: 20060118
  5. MYCOPHENOLATE MOFETIL (MYCOPHENOLATE MOFETIL, ) [Suspect]
     Indication: PROPHYLAXIS AGAINST TRANSPLANT REJECTION
     Dosage: SEE IMAGE
     Route: 048
     Dates: start: 20060119
  6. ACCOLATE [Concomitant]
  7. NIFEDIPINE [Concomitant]
  8. HYTRIN [Concomitant]
  9. LIPITOR [Concomitant]
  10. ASPIRIN [Concomitant]
  11. LOPRESSOR [Concomitant]
  12. PROTONIX [Concomitant]
  13. ALLOPURINOL [Concomitant]
  14. PLETAL [Concomitant]
  15. FLEXERIL [Concomitant]
  16. LASIX [Concomitant]
  17. FERROUS SULFATE TAB [Concomitant]
  18. COLCHICUM JTL LIQ [Concomitant]

REACTIONS (30)
  - ATELECTASIS [None]
  - BACTERIA URINE IDENTIFIED [None]
  - BLOOD BICARBONATE DECREASED [None]
  - BLOOD GLUCOSE INCREASED [None]
  - BLOOD POTASSIUM DECREASED [None]
  - BLOOD PRESSURE DIASTOLIC DECREASED [None]
  - BLOOD URINE PRESENT [None]
  - CARDIAC FAILURE CONGESTIVE [None]
  - DECREASED APPETITE [None]
  - DEHYDRATION [None]
  - DIARRHOEA [None]
  - DIZZINESS [None]
  - DYSPNOEA EXERTIONAL [None]
  - HAEMOGLOBIN DECREASED [None]
  - HYDRONEPHROSIS [None]
  - IMMUNOSUPPRESSANT DRUG LEVEL INCREASED [None]
  - KIDNEY TRANSPLANT REJECTION [None]
  - LUNG CONSOLIDATION [None]
  - MALAISE [None]
  - OEDEMA [None]
  - OEDEMA PERIPHERAL [None]
  - OXYGEN SATURATION DECREASED [None]
  - PCO2 DECREASED [None]
  - PLEURAL EFFUSION [None]
  - PNEUMONIA BACTERIAL [None]
  - PO2 DECREASED [None]
  - PROTEIN URINE PRESENT [None]
  - RENAL FAILURE [None]
  - RESPIRATORY FAILURE [None]
  - URINARY TRACT INFECTION [None]
